FAERS Safety Report 7586194-8 (Version None)
Quarter: 2011Q3

REPORT INFORMATION
  Report Type: 
  Country: None (occurrence: None)
  Receive Date: 20110701
  Receipt Date: 20110627
  Transmission Date: 20111222
  Serious: Yes (Death)
  Sender: FDA-Public Use
  Company Number: GB-NAPPMUNDI-GBR-2010-0007546

PATIENT

DRUGS (4)
  1. MORPHINE SULFATE [Suspect]
     Indication: MATERNAL EXPOSURE DURING PREGNANCY
     Dosage: 5 MG, BID
     Route: 051
     Dates: start: 20100922
  2. ACETAMINOPHEN AND CODEINE PHOSPHATE [Suspect]
     Indication: MATERNAL EXPOSURE DURING PREGNANCY
     Route: 051
  3. ACETAMINOPHEN [Suspect]
     Indication: MATERNAL EXPOSURE DURING PREGNANCY
     Dosage: 1 G, UNK
     Route: 051
  4. BUTRANS [Suspect]
     Indication: MATERNAL EXPOSURE DURING PREGNANCY
     Dosage: 10 MCG, Q1H
     Route: 064
     Dates: start: 20101215, end: 20101229

REACTIONS (1)
  - INTRA-UTERINE DEATH [None]
